FAERS Safety Report 9167369 (Version 1)
Quarter: 2013Q1

REPORT INFORMATION
  Report Type: Spontaneous
  Country: US (occurrence: None)
  Receive Date: 20130305
  Receipt Date: 20130305
  Transmission Date: 20140127
  Serious: No
  Sender: FDA-Public Use
  Company Number: NXG-13-002

PATIENT
  Sex: Male

DRUGS (1)
  1. ZINC [Suspect]
     Dosage: 1-8 LOZENGES/DAY

REACTIONS (2)
  - Erythema [None]
  - Dizziness [None]
